FAERS Safety Report 7261725-6 (Version None)
Quarter: 2011Q1

REPORT INFORMATION
  Report Type: 
  Country: None (occurrence: None)
  Receive Date: 20110130
  Receipt Date: 20101103
  Transmission Date: 20110831
  Serious: No
  Sender: FDA-Public Use
  Company Number: US-ABBOTT-10P-163-0683244-00

PATIENT
  Sex: Female

DRUGS (6)
  1. PREDNISONE [Concomitant]
     Indication: RHEUMATOID ARTHRITIS
  2. HUMIRA [Suspect]
     Indication: RHEUMATOID ARTHRITIS
     Dates: start: 20100901
  3. ULTRACET [Concomitant]
     Indication: RHEUMATOID ARTHRITIS
  4. FOSAMAX [Concomitant]
     Indication: OSTEOPOROSIS
  5. METHOTREXATE [Concomitant]
     Indication: RHEUMATOID ARTHRITIS
  6. PREMPRO [Concomitant]
     Indication: OSTEOPOROSIS

REACTIONS (1)
  - INJECTION SITE PAIN [None]
